FAERS Safety Report 6912895-8 (Version None)
Quarter: 2010Q3

REPORT INFORMATION
  Report Type: 
  Country: None (occurrence: None)
  Receive Date: 20100806
  Receipt Date: 20090310
  Transmission Date: 20110219
  Serious: No
  Sender: FDA-Public Use
  Company Number: US-PFIZER INC-2005035247

PATIENT
  Sex: Female
  Weight: 52.2 kg

DRUGS (4)
  1. DETROL LA [Suspect]
     Dosage: 4 MG, 1X/DAY
     Route: 048
     Dates: start: 20040201
  2. SYNTHROID [Concomitant]
     Route: 048
  3. HYDROCORTISONE [Concomitant]
     Route: 065
     Dates: start: 20050210
  4. ACETYLSALICYLIC ACID [Concomitant]
     Route: 048

REACTIONS (1)
  - DRUG INEFFECTIVE [None]
